FAERS Safety Report 10992143 (Version 2)
Quarter: 2015Q2

REPORT INFORMATION
  Report Type: Spontaneous
  Country: SI (occurrence: SI)
  Receive Date: 20150406
  Receipt Date: 20150515
  Transmission Date: 20150821
  Serious: Yes (Death, Life-Threatening, Hospitalization, Other)
  Sender: FDA-Public Use
  Company Number: SI-B.I. PHARMACEUTICALS,INC./RIDGEFIELD-2015-BI-17194SL

PATIENT
  Sex: Male

DRUGS (1)
  1. PRADAXA [Suspect]
     Active Substance: DABIGATRAN ETEXILATE MESYLATE
     Indication: ATRIAL FIBRILLATION
     Dosage: 300 MG
     Route: 048

REACTIONS (7)
  - Endocarditis [Unknown]
  - Sepsis [Unknown]
  - Acute kidney injury [Unknown]
  - Multi-organ failure [Fatal]
  - Coagulopathy [Unknown]
  - Haematuria [Unknown]
  - Mitral valve incompetence [Unknown]
